FAERS Safety Report 7814362-6 (Version None)
Quarter: 2011Q4

REPORT INFORMATION
  Report Type: 
  Country: None (occurrence: None)
  Receive Date: 20111014
  Receipt Date: 20111003
  Transmission Date: 20120403
  Serious: Yes (Other)
  Sender: FDA-Public Use
  Company Number: PHHY2009BR59239

PATIENT
  Sex: Female
  Weight: 81.7 kg

DRUGS (12)
  1. PAROXETINE HCL [Concomitant]
     Indication: DEPRESSION
     Dosage: 10 MG DAILY
     Route: 048
     Dates: start: 20070101
  2. ASPIRIN [Concomitant]
     Dosage: 1 DF, DAILY
  3. AMLODIPINE BESYLATE [Concomitant]
     Indication: HYPERTENSION
     Dosage: 10 MG, DAILY
  4. AMARYL [Concomitant]
     Indication: DIABETES MELLITUS
     Dosage: 2 MG, BID
     Route: 048
     Dates: start: 20060101
  5. CALCIUM CARBONATE [Concomitant]
  6. FEMARA [Suspect]
     Indication: BREAST CANCER
     Dosage: 1 DF, DAILY
     Route: 048
     Dates: start: 20091201
  7. LEVOTHYROXINE SODIUM [Concomitant]
     Indication: THYROID DISORDER
     Dosage: 25 MG DAILY
     Route: 048
     Dates: start: 20090601
  8. CONCOR [Concomitant]
     Indication: HYPERTENSION
     Dosage: 1.25 MG, QD
     Route: 048
     Dates: start: 20090101
  9. REPAGLINIDE [Concomitant]
     Indication: DIABETES MELLITUS
     Dosage: 1 G, BID
     Dates: start: 20100101
  10. FEMARA [Suspect]
     Indication: BREAST MASS
  11. IRBESARTAN [Concomitant]
     Indication: HYPERTENSION
     Dosage: 150 MG, QD
     Route: 048
     Dates: start: 20090101
  12. OXYBUTYNIN [Concomitant]
     Dosage: 1 DF, DAILY

REACTIONS (14)
  - LIMB DISCOMFORT [None]
  - BLOOD GLUCOSE DECREASED [None]
  - FEELING ABNORMAL [None]
  - COUGH [None]
  - HAEMATEMESIS [None]
  - VOMITING [None]
  - LUNG NEOPLASM [None]
  - PLEURAL EFFUSION [None]
  - MUSCULOSKELETAL PAIN [None]
  - NAUSEA [None]
  - MALAISE [None]
  - BURSITIS [None]
  - GRIP STRENGTH DECREASED [None]
  - SOMNOLENCE [None]
